FAERS Safety Report 8045200-7 (Version None)
Quarter: 2012Q1

REPORT INFORMATION
  Report Type: 
  Country: None (occurrence: None)
  Receive Date: 20120113
  Receipt Date: 20120104
  Transmission Date: 20120608
  Serious: Yes (Other)
  Sender: FDA-Public Use
  Company Number: DK-AMGEN-DNKCT2011028672

PATIENT
  Age: 77 Year
  Sex: Female

DRUGS (8)
  1. CORODIL                            /00574902/ [Concomitant]
     Indication: CARDIAC DISORDER
     Dosage: 5 MG, 1X/DAY
     Route: 048
     Dates: start: 20080623
  2. VISKOESE OEJENDRAABER [Concomitant]
     Indication: DRY EYE
     Dosage: UNK
     Route: 031
     Dates: start: 20080416
  3. OXYCODONE HCL [Concomitant]
     Indication: PAIN
     Dosage: 5 MG, AS NEEDED
     Route: 048
     Dates: start: 20090102
  4. PAMOL [Concomitant]
     Indication: PAIN
     Dosage: 1000 MG, 4X/DAY
     Dates: start: 20080623
  5. METOPROLOL SUCCINATE [Concomitant]
     Indication: HYPERTENSION
     Dosage: 50 MG, 2X/DAY
     Route: 048
     Dates: start: 20080623
  6. ETANERCEPT [Suspect]
     Indication: RHEUMATOID ARTHRITIS
     Dosage: 25 MG, 2 TIMES/WK
     Dates: start: 20061008, end: 20110519
  7. OXYCONTIN [Concomitant]
     Indication: PAIN
     Dosage: 5 MG, 2X/DAY
     Route: 048
     Dates: start: 20101011
  8. ENALAPRIL MALEATE [Concomitant]
     Indication: CARDIAC DISORDER
     Dosage: 5 MG, 1X/DAY
     Route: 048
     Dates: start: 20080623

REACTIONS (1)
  - METASTASES TO LUNG [None]
